FAERS Safety Report 9264167 (Version 1)
Quarter: 2013Q2

REPORT INFORMATION
  Report Type: Spontaneous
  Country: AU (occurrence: AU)
  Receive Date: 20130430
  Receipt Date: 20130430
  Transmission Date: 20140414
  Serious: Yes (Hospitalization)
  Sender: FDA-Public Use
  Company Number: AU-PFIZER INC-2013130218

PATIENT
  Age: 62 Year
  Sex: Female

DRUGS (2)
  1. TRITACE [Suspect]
     Dosage: 3 DF, SINGLE
     Route: 048
     Dates: start: 20130213, end: 20130213
  2. RANITIDINE [Concomitant]
     Dosage: UNK

REACTIONS (3)
  - Accidental exposure to product [Recovered/Resolved]
  - Throat tightness [Recovered/Resolved]
  - Dysphagia [Recovered/Resolved]
